FAERS Safety Report 19900157 (Version 1)
Quarter: 2021Q3

REPORT INFORMATION
  Report Type: Spontaneous
  Country: US (occurrence: US)
  Receive Date: 20210929
  Receipt Date: 20210929
  Transmission Date: 20211014
  Serious: No
  Sender: FDA-Public Use
  Company Number: None

PATIENT
  Age: 79 Year
  Sex: Female

DRUGS (1)
  1. CAPECITABINE TAB 500MG [Suspect]
     Active Substance: CAPECITABINE
     Route: 048
     Dates: start: 202006

REACTIONS (5)
  - Illness [None]
  - Tumour marker increased [None]
  - Palmar-plantar erythrodysaesthesia syndrome [None]
  - Therapy interrupted [None]
  - Neuropathy peripheral [None]

NARRATIVE: CASE EVENT DATE: 20210908
